FAERS Safety Report 8385764-7 (Version None)
Quarter: 2012Q2

REPORT INFORMATION
  Report Type: 
  Country: None (occurrence: None)
  Receive Date: 20120523
  Receipt Date: 20120523
  Transmission Date: 20120825
  Serious: No
  Sender: FDA-Public Use
  Company Number: None

PATIENT
  Age: 83 Year
  Sex: Male
  Weight: 109.5 kg

DRUGS (2)
  1. DABIGATRAN [Suspect]
     Indication: ATRIAL FIBRILLATION
     Dosage: 1 TAB BID PO
     Route: 048
     Dates: start: 20120124, end: 20120328
  2. DABIGATRAN [Suspect]
     Indication: MITRAL VALVE REPLACEMENT
     Dosage: 1 TAB BID PO
     Route: 048
     Dates: start: 20120124, end: 20120328

REACTIONS (4)
  - DYSPHAGIA [None]
  - BURNING SENSATION [None]
  - CHEST PAIN [None]
  - OESOPHAGITIS [None]
